FAERS Safety Report 9735338 (Version 2)
Quarter: 2013Q4

REPORT INFORMATION
  Report Type: Spontaneous
  Country: US (occurrence: US)
  Receive Date: 20131206
  Receipt Date: 20131206
  Transmission Date: 20140711
  Serious: Yes (Other)
  Sender: FDA-Public Use
  Company Number: US-TAKEDA-2013TUS001369

PATIENT
  Sex: 0

DRUGS (2)
  1. ACTOS [Suspect]
     Indication: TYPE 2 DIABETES MELLITUS
     Dosage: 45 MG, UNK
     Dates: start: 200711, end: 200806
  2. AMARYL [Concomitant]
     Dosage: 2 MG, UNK
     Dates: start: 2009

REACTIONS (3)
  - Infection [Unknown]
  - Haemorrhage [Unknown]
  - Bladder cancer [Unknown]
